APPROVED DRUG PRODUCT: RENOVIST
Active Ingredient: DIATRIZOATE MEGLUMINE; DIATRIZOATE SODIUM
Strength: 34.3%;35%
Dosage Form/Route: INJECTABLE;INJECTION
Application: N010040 | Product #020
Applicant: BRACCO DIAGNOSTICS INC
Approved: Approved Prior to Jan 1, 1982 | RLD: No | RS: No | Type: DISCN